FAERS Safety Report 21453252 (Version 1)
Quarter: 2022Q4

REPORT INFORMATION
  Report Type: Spontaneous
  Country: US (occurrence: US)
  Receive Date: 20221013
  Receipt Date: 20221013
  Transmission Date: 20230113
  Serious: No
  Sender: FDA-Public Use
  Company Number: US-BRISTOL-MYERS SQUIBB COMPANY-2022-118444

PATIENT
  Age: 75 Year
  Sex: Female
  Weight: 72.57 kg

DRUGS (5)
  1. ELIQUIS [Suspect]
     Active Substance: APIXABAN
     Indication: Deep vein thrombosis
     Dosage: FREQ : 10MG TWICE A DAY FOR TWO WEEKS, THEN TRY 5MG TWICE.
     Route: 048
     Dates: start: 20220912
  2. LISINOPRIL [Concomitant]
     Active Substance: LISINOPRIL
     Indication: Product used for unknown indication
     Route: 065
  3. TRAMADOL [Concomitant]
     Active Substance: TRAMADOL
     Indication: Product used for unknown indication
     Dosage: 2-3 PILLS IN THE MORNING, PER CONSUMER
     Route: 065
  4. VITAMIN D3 [Concomitant]
     Active Substance: CHOLECALCIFEROL
     Indication: Product used for unknown indication
     Route: 065
  5. XANAX [Concomitant]
     Active Substance: ALPRAZOLAM
     Indication: Product used for unknown indication
     Dosage: EACH NIGHT
     Route: 065

REACTIONS (4)
  - Burning sensation [Unknown]
  - Pain in extremity [Unknown]
  - COVID-19 [Unknown]
  - Treatment noncompliance [Unknown]
